FAERS Safety Report 25588517 (Version 1)
Quarter: 2025Q3

REPORT INFORMATION
  Report Type: Spontaneous
  Country: EG (occurrence: EG)
  Receive Date: 20250722
  Receipt Date: 20250722
  Transmission Date: 20251020
  Serious: Yes (Hospitalization, Other)
  Sender: SANDOZ
  Company Number: EG-SANDOZ-SDZ2025EG050704

PATIENT
  Sex: Male

DRUGS (4)
  1. TACROLIMUS [Suspect]
     Active Substance: TACROLIMUS
     Indication: Multiple organ transplant rejection
     Dosage: 8 MG, Q12H
     Route: 048
     Dates: start: 20240701
  2. LAPINE T-LYMPHOCYTE IMMUNE GLOBULIN [Suspect]
     Active Substance: LAPINE T-LYMPHOCYTE IMMUNE GLOBULIN
     Indication: Multiple organ transplant rejection
     Route: 065
  3. FLUCONAZOLE [Suspect]
     Active Substance: FLUCONAZOLE
     Indication: Enzyme inhibition
     Dosage: 150 MG, Q12H
     Route: 048
     Dates: start: 20240707
  4. MYCOPHENOLATE MOFETIL [Suspect]
     Active Substance: MYCOPHENOLATE MOFETIL
     Indication: Multiple organ transplant rejection
     Dosage: 1000 MG, Q12H
     Route: 048
     Dates: start: 20240701

REACTIONS (3)
  - Transplant rejection [Unknown]
  - Drug level decreased [Not Recovered/Not Resolved]
  - Therapeutic response decreased [Unknown]
